FAERS Safety Report 18912567 (Version 14)
Quarter: 2023Q1

REPORT INFORMATION
  Report Type: Spontaneous
  Country: IN (occurrence: IN)
  Receive Date: 20210218
  Receipt Date: 20230130
  Transmission Date: 20230418
  Serious: Yes (Other)
  Sender: FDA-Public Use
  Company Number: IN-PFIZER INC-2021122707

PATIENT
  Age: 64 Year
  Sex: Female

DRUGS (7)
  1. PALBOCICLIB [Suspect]
     Active Substance: PALBOCICLIB
     Indication: Breast cancer metastatic
     Dosage: 125 MG, 1X/DAY
     Route: 048
     Dates: start: 20201130
  2. PALBOCICLIB [Suspect]
     Active Substance: PALBOCICLIB
     Dosage: 100 MG, 1X/DAY
     Route: 048
     Dates: start: 20220204
  3. FEMARA [Concomitant]
     Active Substance: LETROZOLE
     Dosage: 2.5 MG, 1X/DAY
  4. ZOLEDRONIC ACID [Concomitant]
     Active Substance: ZOLEDRONIC ACID
     Dosage: UNK
  5. BECOZINC [ASCORBIC ACID;CALCIUM PANTOTHENATE;FOLIC ACID;NICOTINAMIDE;P [Concomitant]
     Dosage: 10 ML, 2X/DAY
  6. PROCTIN [CABERGOLINE] [Concomitant]
     Dosage: 10 ML, 1X/DAY
  7. LETROZOLE [Concomitant]
     Active Substance: LETROZOLE
     Dosage: UNK

REACTIONS (26)
  - Upper limb fracture [Unknown]
  - Lower limb fracture [Unknown]
  - Arthralgia [Unknown]
  - Neoplasm progression [Unknown]
  - White blood cell count decreased [Unknown]
  - Haemoglobin decreased [Unknown]
  - Globulins increased [Unknown]
  - Fatigue [Unknown]
  - Gait disturbance [Unknown]
  - Mean cell haemoglobin increased [Unknown]
  - Red blood cell count decreased [Unknown]
  - Haematocrit decreased [Unknown]
  - Platelet distribution width decreased [Unknown]
  - Mean cell volume increased [Unknown]
  - Mean cell haemoglobin concentration decreased [Unknown]
  - Plateletcrit decreased [Unknown]
  - Dizziness [Unknown]
  - Headache [Unknown]
  - Vertigo [Unknown]
  - Blood pressure systolic increased [Unknown]
  - Mean cell haemoglobin increased [Unknown]
  - Monocyte count decreased [Unknown]
  - Platelet count decreased [Unknown]
  - Respiratory rate increased [Unknown]
  - Product dose omission issue [Unknown]
  - Infection [Unknown]

NARRATIVE: CASE EVENT DATE: 20220106
